FAERS Safety Report 7491296-0 (Version None)
Quarter: 2011Q2

REPORT INFORMATION
  Report Type: 
  Country: None (occurrence: None)
  Receive Date: 20110519
  Receipt Date: 20110411
  Transmission Date: 20111010
  Serious: Yes (Hospitalization)
  Sender: FDA-Public Use
  Company Number: B0712860A

PATIENT
  Sex: Female

DRUGS (4)
  1. LAMICTAL [Suspect]
     Indication: PROPHYLAXIS
     Dosage: 50MG PER DAY
     Route: 048
     Dates: start: 20100414, end: 20100602
  2. TEGRETOL [Concomitant]
     Dosage: 400MG PER DAY
     Route: 048
     Dates: start: 20081105
  3. EPADEL [Concomitant]
     Dosage: 1800MG PER DAY
     Route: 048
     Dates: start: 20100210
  4. LOSARTAN POTASSIUM [Concomitant]
     Dosage: 25MG PER DAY
     Route: 048

REACTIONS (3)
  - DRUG ERUPTION [None]
  - LYMPHOCYTE PERCENTAGE DECREASED [None]
  - EOSINOPHIL PERCENTAGE INCREASED [None]
